FAERS Safety Report 4627014-0 (Version None)
Quarter: 2005Q1

REPORT INFORMATION
  Report Type: 
  Country: None (occurrence: None)
  Receive Date: 20050331
  Receipt Date: 20050322
  Transmission Date: 20050727
  Serious: Yes (Hospitalization, Other)
  Sender: FDA-Public Use
  Company Number: 2002055937

PATIENT
  Sex: Female
  Weight: 63.5036 kg

DRUGS (8)
  1. TIKOSYN [Suspect]
     Indication: ATRIAL FIBRILLATION
     Dosage: 1000 MCG (BID), ORAL
     Route: 048
     Dates: start: 20020601
  2. PRAVACHOL [Suspect]
     Indication: ILL-DEFINED DISORDER
     Dosage: 40 MG (DAILY), ORAL
     Route: 048
     Dates: start: 20020601
  3. PAROXETINE HCL [Concomitant]
  4. RALOXIFENE HCL [Concomitant]
  5. ASPIRIN [Concomitant]
  6. OMEPRAZOLE [Concomitant]
  7. AMLODIPINE [Concomitant]
  8. BRIMONIDINE TARTRATE [Concomitant]

REACTIONS (11)
  - ARTHRALGIA [None]
  - ASTHENIA [None]
  - ATRIAL FIBRILLATION [None]
  - CONDITION AGGRAVATED [None]
  - DACRYOSTENOSIS ACQUIRED [None]
  - DIZZINESS [None]
  - FATIGUE [None]
  - FREQUENT BOWEL MOVEMENTS [None]
  - LACRIMATION INCREASED [None]
  - MUSCLE SPASMS [None]
  - MYALGIA [None]
